FAERS Safety Report 9353493 (Version 1)
Quarter: 2013Q2

REPORT INFORMATION
  Report Type: Report from Study
  Country: BR (occurrence: BR)
  Receive Date: 20130618
  Receipt Date: 20130618
  Transmission Date: 20140414
  Serious: Yes (Death, Hospitalization)
  Sender: FDA-Public Use
  Company Number: BR-BAYER-2013-071494

PATIENT
  Age: 59 Year
  Sex: Male

DRUGS (2)
  1. NEXAVAR [Suspect]
     Indication: HEPATIC CANCER
     Dosage: 2 DF, BID
     Route: 048
  2. TENOFOVIR [Concomitant]
     Indication: HEPATITIS B
     Dosage: UNK
     Route: 048
     Dates: start: 201211, end: 20130427

REACTIONS (3)
  - Hepatic cancer [Fatal]
  - Aphagia [Not Recovered/Not Resolved]
  - Dehydration [Not Recovered/Not Resolved]
